FAERS Safety Report 5965296-3 (Version None)
Quarter: 2008Q4

REPORT INFORMATION
  Report Type: 
  Country: None (occurrence: None)
  Receive Date: 20081125
  Receipt Date: 20081117
  Transmission Date: 20090506
  Serious: Yes (Death)
  Sender: FDA-Public Use
  Company Number: US-ROCHE-597675

PATIENT
  Sex: Female
  Weight: 53.1 kg

DRUGS (1)
  1. CAPECITABINE [Suspect]
     Indication: BREAST CANCER
     Dosage: DOSE: 1000 MG AM, 1000 MG PM, EVERY DAY
     Route: 048
     Dates: start: 20070110

REACTIONS (1)
  - BREAST CANCER [None]
